FAERS Safety Report 14890385 (Version 6)
Quarter: 2019Q2

REPORT INFORMATION
  Report Type: Spontaneous
  Country: US (occurrence: US)
  Receive Date: 20180514
  Receipt Date: 20190617
  Transmission Date: 20190711
  Serious: No
  Sender: FDA-Public Use
  Company Number: US-PFIZER INC-2018194247

PATIENT
  Age: 55 Year
  Sex: Male
  Weight: 76 kg

DRUGS (12)
  1. LYRICA [Suspect]
     Active Substance: PREGABALIN
     Dosage: 100 MG, 3X/DAY (EVERY 8 HOURS)
     Route: 048
     Dates: start: 20190524, end: 2019
  2. SIMVASTATIN. [Concomitant]
     Active Substance: SIMVASTATIN
     Indication: BLOOD TRIGLYCERIDES INCREASED
     Dosage: 20 MG, 1X/DAY
     Route: 048
  3. QUETIAPINE FUMARATE. [Concomitant]
     Active Substance: QUETIAPINE FUMARATE
     Indication: DEPRESSION
  4. QUETIAPINE FUMARATE. [Concomitant]
     Active Substance: QUETIAPINE FUMARATE
     Indication: ANXIETY
     Dosage: 50 MG, 1X/DAY, [ONCE AT BEDTIME]
  5. LYRICA [Suspect]
     Active Substance: PREGABALIN
     Indication: SCIATICA
     Dosage: 100 MG, 3X/DAY
     Route: 048
     Dates: start: 2005
  6. LYRICA [Suspect]
     Active Substance: PREGABALIN
     Indication: BACK PAIN
     Dosage: 100 MG, UNK
     Dates: start: 2015
  7. LYRICA [Suspect]
     Active Substance: PREGABALIN
     Dosage: 100 MG, UNK (EVERY 8 HOURS)
     Route: 048
     Dates: start: 20190604
  8. OXYCODONE HYDROCHLORIDE. [Concomitant]
     Active Substance: OXYCODONE HYDROCHLORIDE
     Indication: BACK PAIN
     Dosage: 10 MG, AS NEEDED, [1 TABLET BY MOUTH EVERY 4 HOURS AS NEEDED]
     Route: 048
  9. ALPRAZOLAM. [Concomitant]
     Active Substance: ALPRAZOLAM
     Indication: ANXIETY
     Dosage: 0.25 MG, AS NEEDED, [HALF OF A 0.5MG TABLET WHICH IS 0.25MG, ONCE OR TWICE A DAY EVERY 3-4 DAYS]
     Dates: start: 1998
  10. FELODIPINE. [Concomitant]
     Active Substance: FELODIPINE
     Indication: HYPERTENSION
     Dosage: 10 MG, 1X/DAY
     Route: 048
  11. ESCITALOPRAM [Concomitant]
     Active Substance: ESCITALOPRAM OXALATE
     Indication: DEPRESSION
     Dosage: 20 MG, 1X/DAY
     Route: 048
  12. OXYCODONE HYDROCHLORIDE. [Concomitant]
     Active Substance: OXYCODONE HYDROCHLORIDE
     Indication: SCIATICA

REACTIONS (2)
  - Oedema peripheral [Not Recovered/Not Resolved]
  - Joint swelling [Not Recovered/Not Resolved]

NARRATIVE: CASE EVENT DATE: 2018
